FAERS Safety Report 21761055 (Version 1)
Quarter: 2022Q4

REPORT INFORMATION
  Report Type: Spontaneous
  Country: JP (occurrence: JP)
  Receive Date: 20221221
  Receipt Date: 20221221
  Transmission Date: 20230112
  Serious: Yes (Other)
  Sender: FDA-Public Use
  Company Number: JP-PFIZER INC-PV202200125476

PATIENT
  Age: 51 Year
  Sex: Female
  Weight: 47.6 kg

DRUGS (2)
  1. DACOMITINIB [Suspect]
     Active Substance: DACOMITINIB
     Indication: Non-small cell lung cancer
     Dosage: 45 MG, DAILY
     Dates: start: 20200807, end: 20201028
  2. DACOMITINIB [Suspect]
     Active Substance: DACOMITINIB
     Dosage: 30 MG, DAILY
     Dates: start: 20201119, end: 20201203

REACTIONS (2)
  - Hemiplegia [Unknown]
  - Aphasia [Unknown]
